FAERS Safety Report 11227133 (Version 2)
Quarter: 2015Q3

REPORT INFORMATION
  Report Type: Spontaneous
  Country: US (occurrence: US)
  Receive Date: 20150630
  Receipt Date: 20150731
  Transmission Date: 20151125
  Serious: Yes (Hospitalization)
  Sender: FDA-Public Use
  Company Number: US-BEH-2015051996

PATIENT
  Sex: Female
  Weight: 9 kg

DRUGS (5)
  1. HIZENTRA [Suspect]
     Active Substance: HUMAN IMMUNOGLOBULIN G
     Indication: IMMUNODEFICIENCY
     Dosage: 1 G AS DIRECTED (1G 5 ML VIAL)
     Route: 058
  2. EPIPEN [Concomitant]
     Active Substance: EPINEPHRINE
     Indication: ANAPHYLACTIC REACTION
     Dosage: 1 DOSE AS DIRECTED (AUTO INJECTOR)
     Route: 030
  3. ACETAMINOPHEN. [Concomitant]
     Active Substance: ACETAMINOPHEN
     Dosage: 1 DOSE AS DIRECTED
     Route: 048
  4. DIPHENHYDRAMINE. [Concomitant]
     Active Substance: DIPHENHYDRAMINE
     Dosage: 1 DOSE AS DIRECTED
     Route: 048
  5. LMX [Concomitant]
     Active Substance: LIDOCAINE
     Dosage: 1 DOSE AS DIRECTED 4% PRIOR
     Route: 061

REACTIONS (6)
  - Vomiting [Unknown]
  - Infusion site nodule [Unknown]
  - Infusion site rash [Unknown]
  - Heart rate increased [Unknown]
  - Pyrexia [Unknown]
  - Infusion site haemorrhage [Unknown]
